FAERS Safety Report 25632423 (Version 1)
Quarter: 2025Q3

REPORT INFORMATION
  Report Type: Spontaneous
  Country: US (occurrence: US)
  Receive Date: 20250801
  Receipt Date: 20250801
  Transmission Date: 20251021
  Serious: No
  Sender: VERTEX
  Company Number: US-VERTEX PHARMACEUTICALS-2025-003978

PATIENT
  Age: 45 Year
  Sex: Female

DRUGS (6)
  1. ALYFTREK [Suspect]
     Active Substance: DEUTIVACAFTOR\TEZACAFTOR\VANZACAFTOR
     Indication: Cystic fibrosis
     Dosage: ONCE A DAY
     Route: 048
  2. CAYSTON [Concomitant]
     Active Substance: AZTREONAM
  3. TOBI [Concomitant]
     Active Substance: TOBRAMYCIN
  4. LEVAQUIN [Concomitant]
     Active Substance: LEVOFLOXACIN
     Indication: Infective pulmonary exacerbation of cystic fibrosis
  5. CIPRO [Concomitant]
     Active Substance: CIPROFLOXACIN HYDROCHLORIDE
     Indication: Infective pulmonary exacerbation of cystic fibrosis
  6. DOXYCYCLINE [Concomitant]
     Active Substance: DOXYCYCLINE
     Indication: Infective pulmonary exacerbation of cystic fibrosis

REACTIONS (1)
  - Weight increased [Recovering/Resolving]
